FAERS Safety Report 6011395-X (Version None)
Quarter: 2008Q4

REPORT INFORMATION
  Report Type: 
  Country: None (occurrence: None)
  Receive Date: 20081218
  Receipt Date: 20081208
  Transmission Date: 20090506
  Serious: Yes (Death)
  Sender: FDA-Public Use
  Company Number: FI-JNJFOC-20081200515

PATIENT
  Sex: Male
  Weight: 85 kg

DRUGS (7)
  1. REMICADE [Suspect]
     Route: 042
  2. REMICADE [Suspect]
     Indication: DRUG USE FOR UNKNOWN INDICATION
     Dosage: 1ST INFUSION
     Route: 042
  3. ENALAPRIL MALEATE [Concomitant]
  4. SELOKEN [Concomitant]
  5. FURESIS [Concomitant]
  6. AMLODIPINE [Concomitant]
  7. PREDNISONE TAB [Concomitant]

REACTIONS (11)
  - ALVEOLITIS ALLERGIC [None]
  - AORTIC RUPTURE [None]
  - AORTITIS [None]
  - EYE SWELLING [None]
  - FEELING HOT [None]
  - INFLUENZA LIKE ILLNESS [None]
  - INFUSION RELATED REACTION [None]
  - PANCREATITIS [None]
  - PRURITUS [None]
  - PUSTULAR PSORIASIS [None]
  - SENSATION OF FOREIGN BODY [None]
